FAERS Safety Report 5090635-8 (Version None)
Quarter: 2006Q3

REPORT INFORMATION
  Report Type: 
  Country: None (occurrence: None)
  Receive Date: 20060823
  Receipt Date: 20060810
  Transmission Date: 20061208
  Serious: Yes (Hospitalization)
  Sender: FDA-Public Use
  Company Number: HQWYE713518AUG06

PATIENT

DRUGS (1)
  1. MYLOTARG [Suspect]

REACTIONS (3)
  - BODY TEMPERATURE INCREASED [None]
  - INFUSION RELATED REACTION [None]
  - PLATELET COUNT DECREASED [None]
